FAERS Safety Report 15836913 (Version 1)
Quarter: 2018Q4

REPORT INFORMATION
  Report Type: Spontaneous
  Country: US (occurrence: US)
  Receive Date: 20181221
  Receipt Date: 20181221
  Transmission Date: 20190205
  Serious: Yes (Hospitalization)
  Sender: FDA-Public Use
  Company Number: None

PATIENT
  Age: 49 Year
  Sex: Female

DRUGS (4)
  1. CLOBETASOL [Concomitant]
     Active Substance: CLOBETASOL
  2. LITHIUM CARBONATE. [Suspect]
     Active Substance: LITHIUM CARBONATE
  3. NYSTATIN. [Suspect]
     Active Substance: NYSTATIN
  4. HUMIRA [Suspect]
     Active Substance: ADALIMUMAB
     Indication: PSORIASIS
     Route: 058
     Dates: start: 20151123, end: 20181219

REACTIONS (1)
  - Oesophageal oedema [None]

NARRATIVE: CASE EVENT DATE: 20180901
